FAERS Safety Report 8484860-3 (Version None)
Quarter: 2012Q3

REPORT INFORMATION
  Report Type: 
  Country: None (occurrence: None)
  Receive Date: 20120703
  Receipt Date: 20120626
  Transmission Date: 20120928
  Serious: Yes (Other)
  Sender: FDA-Public Use
  Company Number: JP-ELI_LILLY_AND_COMPANY-JP201107001546

PATIENT
  Age: 78 Year
  Sex: Female

DRUGS (3)
  1. FORTEO [Suspect]
     Indication: OSTEOPOROSIS
     Dosage: UNK
     Route: 058
     Dates: start: 20110608, end: 20110618
  2. FORTEO [Suspect]
     Dosage: UNK
     Route: 058
     Dates: start: 20110601, end: 20120620
  3. INSULIN [Concomitant]
     Indication: DIABETES MELLITUS
     Route: 058

REACTIONS (6)
  - HYPOGLYCAEMIA [None]
  - POOR DENTAL CONDITION [None]
  - WEIGHT DECREASED [None]
  - BREAST CANCER FEMALE [None]
  - DECREASED APPETITE [None]
  - CHEST PAIN [None]
